FAERS Safety Report 7622234-5 (Version None)
Quarter: 2011Q3

REPORT INFORMATION
  Report Type: 
  Country: None (occurrence: None)
  Receive Date: 20110720
  Receipt Date: 20110403
  Transmission Date: 20111222
  Serious: Yes (Other)
  Sender: FDA-Public Use
  Company Number: US-BAYER-2010-009264

PATIENT
  Sex: Female
  Weight: 98.866 kg

DRUGS (12)
  1. YASMIN [Suspect]
     Indication: CONTRACEPTION
     Dosage: UNK
     Dates: start: 20070712, end: 20090424
  2. EFFEXOR [Concomitant]
     Dosage: UNK UNK, QD
     Dates: start: 20071008
  3. AMOXICILLIN [Concomitant]
     Dosage: UNK UNK, QD
     Dates: start: 20071008
  4. YAZ [Suspect]
     Indication: PREMENSTRUAL SYNDROME
     Dosage: UNK
     Dates: start: 20070701, end: 20080801
  5. YAZ [Suspect]
     Dosage: UNK
     Dates: start: 20070712, end: 20090424
  6. YASMIN [Suspect]
     Indication: PREMENSTRUAL SYNDROME
  7. CHORIONIC GONADOTROPIN [Concomitant]
     Dosage: UNK UNK, QD
     Dates: start: 20090401
  8. YAZ [Suspect]
     Indication: CONTRACEPTION
     Dosage: UNK
     Dates: start: 20080801, end: 20090401
  9. ADDERALL 10 [Concomitant]
     Dosage: UNK UNK, QD
     Dates: start: 20041116
  10. TOBRAMYCIN [Concomitant]
     Dosage: UNK UNK, QD
     Dates: start: 20070802, end: 20070808
  11. PAROXETINE HCL [Concomitant]
     Dosage: UNK UNK, QD
     Dates: start: 20061109, end: 20081001
  12. PENICILLIN VK [Concomitant]
     Dosage: UNK UNK, QD
     Dates: start: 20080726, end: 20090224

REACTIONS (11)
  - GAIT DISTURBANCE [None]
  - DEEP VEIN THROMBOSIS [None]
  - PAIN [None]
  - OEDEMA PERIPHERAL [None]
  - EMOTIONAL DISTRESS [None]
  - PAIN IN EXTREMITY [None]
  - ANXIETY [None]
  - HYPOAESTHESIA [None]
  - NERVE INJURY [None]
  - INJURY [None]
  - GENERAL PHYSICAL HEALTH DETERIORATION [None]
